FAERS Safety Report 17233138 (Version 1)
Quarter: 2020Q1

REPORT INFORMATION
  Report Type: Spontaneous
  Country: CH (occurrence: CH)
  Receive Date: 20200104
  Receipt Date: 20200104
  Transmission Date: 20200409
  Serious: Yes (Hospitalization)
  Sender: FDA-Public Use
  Company Number: NVSC2019CH085008

PATIENT
  Age: 84 Year
  Sex: Female

DRUGS (20)
  1. VITARUBIN [Concomitant]
     Active Substance: CYANOCOBALAMIN
     Indication: PRODUCT USED FOR UNKNOWN INDICATION
     Dosage: UNK UKN
     Route: 065
  2. ISONIAZID. [Concomitant]
     Active Substance: ISONIAZID
     Indication: TUBERCULOSIS
     Dosage: UNK UKN
     Route: 065
  3. ISOPTIN [Suspect]
     Active Substance: VERAPAMIL HYDROCHLORIDE
     Indication: PRODUCT USED FOR UNKNOWN INDICATION
     Dosage: 2.5 MG (IN TOTAL)
     Route: 013
     Dates: start: 20191014, end: 20191014
  4. LASIX [Concomitant]
     Active Substance: FUROSEMIDE
     Indication: PRODUCT USED FOR UNKNOWN INDICATION
     Dosage: 20 MG, BID
     Route: 065
     Dates: start: 20191001, end: 20191007
  5. HEPARIN [Concomitant]
     Active Substance: HEPARIN SODIUM
     Indication: PRODUCT USED FOR UNKNOWN INDICATION
     Dosage: 4000 IU (TOTAL)
     Route: 013
     Dates: start: 20191014, end: 20191014
  6. ACIDUM FOLICUM [Concomitant]
     Active Substance: FOLIC ACID
     Indication: PRODUCT USED FOR UNKNOWN INDICATION
     Dosage: UNK UKN
     Route: 065
  7. TORASEMIDE [Suspect]
     Active Substance: TORSEMIDE
     Indication: PRODUCT USED FOR UNKNOWN INDICATION
     Dosage: 15 MG, QD
     Route: 048
     Dates: start: 20191008, end: 20191016
  8. VISIPAQUE [Suspect]
     Active Substance: IODIXANOL
     Indication: ANGIOCARDIOGRAM
     Dosage: 40 UNK (MILLILITRE, TOTAL)
     Route: 022
     Dates: start: 20191014, end: 20191014
  9. SINTROM [Concomitant]
     Active Substance: ACENOCOUMAROL
     Indication: PRODUCT USED FOR UNKNOWN INDICATION
     Dosage: UNK UKN
     Route: 065
  10. DAFALGAN [Concomitant]
     Active Substance: ACETAMINOPHEN
     Indication: PAIN
     Dosage: UNK UKN, PRN
     Route: 048
  11. BELOC ZOK [Concomitant]
     Active Substance: METOPROLOL SUCCINATE
     Indication: PRODUCT USED FOR UNKNOWN INDICATION
     Dosage: UNK UKN
     Route: 065
  12. VITAMIN B6 [Concomitant]
     Active Substance: PYRIDOXINE HYDROCHLORIDE
     Indication: PRODUCT USED FOR UNKNOWN INDICATION
     Dosage: UNK UKN
     Route: 065
  13. MOVCOL [Concomitant]
     Indication: PRODUCT USED FOR UNKNOWN INDICATION
     Dosage: UNK UKN, PRN
     Route: 048
     Dates: start: 20191004
  14. ESIDREX [Suspect]
     Active Substance: HYDROCHLOROTHIAZIDE
     Indication: PRODUCT USED FOR UNKNOWN INDICATION
     Dosage: 12.5 MG, QD
     Route: 048
     Dates: start: 20191016, end: 20191018
  15. CLEXANE [Suspect]
     Active Substance: ENOXAPARIN SODIUM
     Dosage: 40 MG, BID
     Route: 058
     Dates: start: 201910, end: 20191019
  16. LIDOCAINE. [Concomitant]
     Active Substance: LIDOCAINE
     Indication: PRODUCT USED FOR UNKNOWN INDICATION
     Dosage: 1 DF (TOTAL)
     Route: 058
     Dates: start: 20191014, end: 20191014
  17. TEMESTA EXPIDET [Concomitant]
     Active Substance: LORAZEPAM
     Indication: PRODUCT USED FOR UNKNOWN INDICATION
     Dosage: UNK UKN
     Route: 065
  18. METOLAZONE. [Concomitant]
     Active Substance: METOLAZONE
     Indication: PRODUCT USED FOR UNKNOWN INDICATION
     Dosage: 2.5 MG, QD
     Route: 048
     Dates: start: 20191006, end: 20191007
  19. RIFAMPICIN [Concomitant]
     Active Substance: RIFAMPIN
     Indication: TUBERCULOSIS
     Dosage: UNK UKN
     Route: 065
  20. CLEXANE [Suspect]
     Active Substance: ENOXAPARIN SODIUM
     Indication: PRODUCT USED FOR UNKNOWN INDICATION
     Dosage: 50 MG, BID
     Route: 058
     Dates: start: 20191009, end: 201910

REACTIONS (4)
  - C-reactive protein increased [Recovering/Resolving]
  - Pyrexia [Recovered/Resolved]
  - Pain [Recovered/Resolved]
  - Rash maculo-papular [Recovered/Resolved]

NARRATIVE: CASE EVENT DATE: 20191015
